FAERS Safety Report 12696833 (Version 1)
Quarter: 2016Q3

REPORT INFORMATION
  Report Type: Spontaneous
  Country: US (occurrence: None)
  Receive Date: 20160829
  Receipt Date: 20160829
  Transmission Date: 20161109
  Serious: Yes (Hospitalization, Disabling)
  Sender: FDA-Public Use
  Company Number: None

PATIENT
  Age: 52 Year
  Sex: Female
  Weight: 63.5 kg

DRUGS (15)
  1. FOLIC ACID. [Concomitant]
     Active Substance: FOLIC ACID
  2. INOSITOL [Concomitant]
     Active Substance: INOSITOL
  3. MAGNESIUM [Concomitant]
     Active Substance: MAGNESIUM
  4. PEPCID [Concomitant]
     Active Substance: FAMOTIDINE
  5. ZANTAC [Concomitant]
     Active Substance: RANITIDINE HYDROCHLORIDE
  6. LORAZEPAM. [Concomitant]
     Active Substance: LORAZEPAM
  7. CIPROFLOXACIN. [Suspect]
     Active Substance: CIPROFLOXACIN
     Indication: URINARY TRACT INFECTION
     Dosage: 7 TABLET TWICE A DAY
     Route: 048
     Dates: start: 20151019, end: 20151025
  8. VITAMIN D3 [Concomitant]
     Active Substance: CHOLECALCIFEROL
  9. CALCIUM [Concomitant]
     Active Substance: CALCIUM
  10. DIGESTIVE ENZYMES [Concomitant]
     Active Substance: UNSPECIFIED INGREDIENT
  11. GENERIC K-DUR [Concomitant]
  12. FISH OIL [Concomitant]
     Active Substance: FISH OIL
  13. METOPROLOL. [Concomitant]
     Active Substance: METOPROLOL
  14. VITAMIN K [Concomitant]
     Active Substance: PHYTONADIONE
  15. D-MANNOSE [Concomitant]

REACTIONS (33)
  - Dyspnoea [None]
  - Toxicity to various agents [None]
  - Dry eye [None]
  - Panic attack [None]
  - Renal disorder [None]
  - Bladder disorder [None]
  - Paraesthesia [None]
  - Back disorder [None]
  - Decreased appetite [None]
  - Nonspecific reaction [None]
  - Weight decreased [None]
  - Dysstasia [None]
  - Hyperhidrosis [None]
  - Headache [None]
  - Pyrexia [None]
  - Dizziness [None]
  - Dry mouth [None]
  - Tinnitus [None]
  - Feeling abnormal [None]
  - Depression [None]
  - Pain [None]
  - Nausea [None]
  - Depersonalisation/derealisation disorder [None]
  - Gastrointestinal disorder [None]
  - Tremor [None]
  - Syncope [None]
  - Gait disturbance [None]
  - Abdominal pain upper [None]
  - Anxiety [None]
  - Cardiac disorder [None]
  - Nervous system disorder [None]
  - Amnesia [None]
  - Muscular weakness [None]

NARRATIVE: CASE EVENT DATE: 20160130
